FAERS Safety Report 15636961 (Version 1)
Quarter: 2018Q4

REPORT INFORMATION
  Report Type: Spontaneous
  Country: NL (occurrence: NL)
  Receive Date: 20181120
  Receipt Date: 20181120
  Transmission Date: 20190205
  Serious: Yes (Hospitalization, Other)
  Sender: FDA-Public Use
  Company Number: NL-GLAXOSMITHKLINE-NL2018GSK209766

PATIENT
  Sex: Male

DRUGS (9)
  1. PHENYLEPHRINE [Suspect]
     Active Substance: PHENYLEPHRINE\PHENYLEPHRINE HYDROCHLORIDE
     Route: 064
  2. RANITIDINE. [Suspect]
     Active Substance: RANITIDINE
     Indication: RESPIRATORY DISORDER PROPHYLAXIS
     Dosage: 50 MG, UNK
     Route: 064
  3. ROPIVACAINE. [Suspect]
     Active Substance: ROPIVACAINE HYDROCHLORIDE
     Indication: ANALGESIC THERAPY
     Route: 064
  4. SUFENTANIL [Suspect]
     Active Substance: SUFENTANIL
     Indication: ANAESTHESIA
     Dosage: 1.8 MCG/MG, UNK
     Route: 064
  5. CEFAZOLIN [Suspect]
     Active Substance: CEFAZOLIN
     Indication: PRODUCT USED FOR UNKNOWN INDICATION
     Dosage: 1 G, UNK
     Route: 064
  6. OXYTOCIN. [Suspect]
     Active Substance: OXYTOCIN
     Indication: PRODUCT USED FOR UNKNOWN INDICATION
     Route: 064
  7. METOCLOPRAMIDE. [Suspect]
     Active Substance: METOCLOPRAMIDE
     Indication: RESPIRATORY DISORDER PROPHYLAXIS
     Dosage: 10 MG, UNK
     Route: 064
  8. BUPIVACAINE. [Suspect]
     Active Substance: BUPIVACAINE
     Indication: ANAESTHESIA
     Dosage: 1.2 MG, UNK
     Route: 064
  9. PARACETAMOL [Suspect]
     Active Substance: ACETAMINOPHEN
     Indication: PRODUCT USED FOR UNKNOWN INDICATION
     Dosage: 1 G, UNK
     Route: 064

REACTIONS (3)
  - Neonatal respiratory distress syndrome [Unknown]
  - Premature baby [Unknown]
  - Foetal exposure during pregnancy [Unknown]
